FAERS Safety Report 16107834 (Version 1)
Quarter: 2019Q1

REPORT INFORMATION
  Report Type: Spontaneous
  Country: CA (occurrence: CA)
  Receive Date: 20190322
  Receipt Date: 20190322
  Transmission Date: 20190418
  Serious: Yes (Other)
  Sender: FDA-Public Use
  Company Number: CA-PFIZER INC-2019122459

PATIENT
  Age: 73 Year
  Sex: Male

DRUGS (29)
  1. KINERET [Suspect]
     Active Substance: ANAKINRA
     Dosage: UNK
  2. TRAZODONE [Suspect]
     Active Substance: TRAZODONE HYDROCHLORIDE
     Dosage: 50 MG, UNK
  3. APO LEVOFLOXACIN [Concomitant]
     Active Substance: LEVOFLOXACIN
     Dosage: 500 MG, UNK
  4. LAX-A-DAY [Concomitant]
     Dosage: UNK
     Route: 048
  5. PREDNISONE. [Concomitant]
     Active Substance: PREDNISONE
     Dosage: 5 (MULTIPLE COURSES)
  6. NYSTATIN. [Concomitant]
     Active Substance: NYSTATIN
     Dosage: UNK
  7. TRAZODONE [Suspect]
     Active Substance: TRAZODONE HYDROCHLORIDE
     Dosage: 100 MG, UNK
  8. ALENDRONATE TEVA [Concomitant]
     Active Substance: ALENDRONATE SODIUM
     Dosage: 70 MG, UNK
  9. SYNTHROID [Concomitant]
     Active Substance: LEVOTHYROXINE SODIUM
     Dosage: 50 UG, UNK
  10. SALBUTAMOL TEVA [Concomitant]
     Active Substance: ALBUTEROL
     Dosage: 100 UG, UNK
  11. TEVA PREGABALIN [Concomitant]
     Active Substance: PREGABALIN
     Dosage: 50 MG, UNK
  12. PREDNISONE. [Concomitant]
     Active Substance: PREDNISONE
     Dosage: 50 MG, UNK
  13. RANITIDINE. [Concomitant]
     Active Substance: RANITIDINE
     Dosage: 150 MG, UNK
  14. KETODERM [KETOCONAZOLE] [Concomitant]
     Dosage: 2 %, UNK
     Route: 061
  15. SELAX [Concomitant]
     Dosage: 100 MG, UNK
  16. ILARIS [Suspect]
     Active Substance: CANAKINUMAB
     Dosage: UNK
  17. PMS DUTASTERIDE [Concomitant]
     Dosage: 0.5 MG CAPSULE
  18. EURO D [Concomitant]
     Dosage: 10000 IU
  19. EURO ASA EC [Concomitant]
     Dosage: 80 MG, UNK
  20. TEVA PREGABALIN [Concomitant]
     Active Substance: PREGABALIN
     Dosage: 25 MG, UNK
  21. PREGABALIN. [Suspect]
     Active Substance: PREGABALIN
     Dosage: 25 MG, 2X/DAY
  22. INFLECTRA [Concomitant]
     Active Substance: INFLIXIMAB-DYYB
     Indication: ANKYLOSING SPONDYLITIS
     Dosage: 5 MG/KG, CYCLIC (EVERY 6 WEEKS)
     Route: 042
     Dates: start: 20190213
  23. ROSUVASTATIN TEVA [Concomitant]
     Active Substance: ROSUVASTATIN
     Dosage: 10 MG, UNK
  24. APO PANTOPRAZOLE [Concomitant]
     Dosage: 40 MG, UNK
  25. FLORINEF ACETATE [Concomitant]
     Active Substance: FLUDROCORTISONE ACETATE
     Dosage: 0.1 MG, UNK
  26. GESIC [INDOMETACIN] [Concomitant]
     Dosage: 325 MG, UNK
  27. METHOTREXATE SODIUM. [Suspect]
     Active Substance: METHOTREXATE SODIUM
     Dosage: UNK
  28. SULFATRIM [Concomitant]
     Active Substance: SULFAMETHOXAZOLE\TRIMETHOPRIM
     Dosage: 800+160 MG
  29. APO FLUCONAZOLE [Concomitant]
     Dosage: 50 MG, UNK

REACTIONS (3)
  - Rash [Unknown]
  - Sepsis [Unknown]
  - Drug ineffective [Unknown]
